FAERS Safety Report 5915895-X (Version None)
Quarter: 2008Q4

REPORT INFORMATION
  Report Type: 
  Country: None (occurrence: None)
  Receive Date: 20081010
  Receipt Date: 20081002
  Transmission Date: 20090506
  Serious: Yes (Other)
  Sender: FDA-Public Use
  Company Number: US-PFIZER INC-2008083775

PATIENT
  Age: 76 Year
  Sex: Male

DRUGS (7)
  1. LYRICA [Suspect]
     Route: 048
     Dates: start: 20071227
  2. ANALGESICS [Concomitant]
     Route: 048
  3. LISINOPRIL [Concomitant]
  4. HYDRODIURIL [Concomitant]
  5. ELAVIL [Concomitant]
  6. TERAZOSIN HCL [Concomitant]
  7. AVODART [Concomitant]

REACTIONS (2)
  - DIABETIC NEUROPATHY [None]
  - OEDEMA PERIPHERAL [None]
